FAERS Safety Report 25473423 (Version 1)
Quarter: 2025Q2

REPORT INFORMATION
  Report Type: Spontaneous
  Country: US (occurrence: None)
  Receive Date: 20250623
  Receipt Date: 20250623
  Transmission Date: 20250716
  Serious: Yes (Other)
  Sender: FDA-CTU
  Company Number: None

PATIENT
  Age: 57 Year
  Sex: Male

DRUGS (7)
  1. XPHOZAH [Suspect]
     Active Substance: TENAPANOR HYDROCHLORIDE
     Indication: Hyperphosphataemia
     Dosage: 30 MG BID ORAL
     Route: 048
     Dates: start: 20250514
  2. Accu-check testing supplies, strips and lancets [Concomitant]
  3. Iisosorbide dinitrate [Concomitant]
  4. TORSEMIDE [Concomitant]
     Active Substance: TORSEMIDE
  5. HYDRALAZINE [Concomitant]
     Active Substance: HYDRALAZINE HYDROCHLORIDE
  6. Carvediolol [Concomitant]
  7. ASPIRIN [Concomitant]
     Active Substance: ASPIRIN

REACTIONS (1)
  - Diarrhoea [None]
